FAERS Safety Report 19897566 (Version 1)
Quarter: 2021Q3

REPORT INFORMATION
  Report Type: Report from Study
  Country: BE (occurrence: BE)
  Receive Date: 20210929
  Receipt Date: 20210929
  Transmission Date: 20211014
  Serious: Yes (Other)
  Sender: FDA-Public Use
  Company Number: BE-PFIZER INC-202101259215

PATIENT
  Sex: Female

DRUGS (2)
  1. TRASTUZUMAB. [Suspect]
     Active Substance: TRASTUZUMAB
     Indication: HER2 POSITIVE BREAST CANCER
     Dosage: UNK
  2. MEN 1611 [Suspect]
     Active Substance: CH-5132799 MESYLATE
     Indication: HER2 POSITIVE BREAST CANCER
     Dosage: UNK

REACTIONS (1)
  - General physical health deterioration [Unknown]
